FAERS Safety Report 9111877 (Version 1)
Quarter: 2013Q1

REPORT INFORMATION
  Report Type: Spontaneous
  Country: US (occurrence: US)
  Receive Date: 20130219
  Receipt Date: 20130219
  Transmission Date: 20140127
  Serious: No
  Sender: FDA-Public Use
  Company Number: US-BRISTOL-MYERS SQUIBB COMPANY-16690141

PATIENT
  Age: 62 Year
  Sex: Female
  Weight: 81.63 kg

DRUGS (3)
  1. ORENCIA [Suspect]
     Indication: RHEUMATOID ARTHRITIS
     Dosage: LAST DATE OF INJECTION:13JUN2012?PRESCRIPTION:839206
     Route: 058
     Dates: start: 20120119
  2. METHOTREXATE [Concomitant]
  3. TYLENOL [Concomitant]

REACTIONS (1)
  - Drug dose omission [Unknown]
